FAERS Safety Report 20162971 (Version 2)
Quarter: 2022Q1

REPORT INFORMATION
  Report Type: Spontaneous
  Country: IT (occurrence: IT)
  Receive Date: 20211209
  Receipt Date: 20220106
  Transmission Date: 20220423
  Serious: Yes (Other)
  Sender: FDA-Public Use
  Company Number: IT-UCBSA-2021044809

PATIENT
  Age: 23 Year
  Sex: Male

DRUGS (15)
  1. MIDAZOLAM [Suspect]
     Active Substance: MIDAZOLAM
     Indication: Status epilepticus
     Dosage: UNK, INFUSION
     Route: 065
  2. LEVETIRACETAM [Suspect]
     Active Substance: LEVETIRACETAM
     Indication: Status epilepticus
     Dosage: 2000 MILLIGRAMS PER DAY ()
     Route: 065
  3. LEVETIRACETAM [Suspect]
     Active Substance: LEVETIRACETAM
     Dosage: 3000 MILLIGRAMS PER DAY ()
     Route: 065
  4. LACOSAMIDE [Suspect]
     Active Substance: LACOSAMIDE
     Indication: Off label use
     Dosage: 600 MILLIGRAM, DAILY, 600 MILLIGRAM, ONCE DAILY (QD)
     Route: 065
  5. LACOSAMIDE [Suspect]
     Active Substance: LACOSAMIDE
     Dosage: 400 MILLIGRAM, DAILY, 400 MILLIGRAM, ONCE DAILY (QD)
     Route: 065
  6. LACOSAMIDE [Suspect]
     Active Substance: LACOSAMIDE
     Dosage: 400 MILLIGRAM, DAILY, 400 MILLIGRAM, ONCE DAILY (QD)
     Route: 065
  7. PROPOFOL [Suspect]
     Active Substance: PROPOFOL
     Indication: Status epilepticus
     Dosage: UNK
     Route: 042
  8. PROPOFOL [Suspect]
     Active Substance: PROPOFOL
     Route: 042
  9. VALPROIC ACID [Suspect]
     Active Substance: VALPROIC ACID
     Indication: Status epilepticus
     Dosage: 2 MILLIGRAM/KILOGRAM, 1DOSE/1HOUR, MAINTENANCE DOSE OF 2 MG/KG/H
     Route: 065
  10. VALPROIC ACID [Suspect]
     Active Substance: VALPROIC ACID
     Dosage: UNK
     Route: 065
  11. THIOPENTAL [Suspect]
     Active Substance: THIOPENTAL
     Indication: Status epilepticus
     Dosage: UNK
     Route: 065
  12. PHENYTOIN [Suspect]
     Active Substance: PHENYTOIN
     Indication: Status epilepticus
     Dosage: 18 MG/KG IV
     Route: 042
  13. PHENYTOIN [Suspect]
     Active Substance: PHENYTOIN
     Route: 042
  14. METHYLPREDNISOLONE [Concomitant]
     Active Substance: METHYLPREDNISOLONE
     Indication: Status epilepticus
     Dosage: 1000 MILLIGRAMS FOR 5 DAYS ()
     Route: 042
  15. METHYLPREDNISOLONE [Concomitant]
     Active Substance: METHYLPREDNISOLONE
     Dosage: 1000 MILLIGRAMS FOR 5 DAYS ()
     Route: 042

REACTIONS (4)
  - Off label use [Unknown]
  - Status epilepticus [Recovered/Resolved]
  - Multiple-drug resistance [Unknown]
  - Myoclonus [Recovered/Resolved]
